FAERS Safety Report 4366499-4 (Version None)
Quarter: 2004Q2

REPORT INFORMATION
  Report Type: 
  Country: None (occurrence: None)
  Receive Date: 20040527
  Receipt Date: 20040426
  Transmission Date: 20050107
  Serious: No
  Sender: FDA-Public Use
  Company Number: US-BRISTOL-MYERS SQUIBB COMPANY-12571733

PATIENT
  Age: 57 Year
  Sex: Male
  Weight: 114 kg

DRUGS (4)
  1. ERBITUX [Suspect]
     Indication: COLON CANCER
     Dosage: LOADING DOSE, 1ST INFUSION
     Route: 042
     Dates: start: 20040412, end: 20040412
  2. BENADRYL [Concomitant]
     Indication: PREMEDICATION
     Dates: start: 20040412, end: 20040412
  3. RANITIDINE [Concomitant]
  4. DECADRON [Concomitant]

REACTIONS (1)
  - RASH [None]
